FAERS Safety Report 13195051 (Version 2)
Quarter: 2017Q1

REPORT INFORMATION
  Report Type: Spontaneous
  Country: US (occurrence: US)
  Receive Date: 20170207
  Receipt Date: 20170317
  Transmission Date: 20170428
  Serious: No
  Sender: FDA-Public Use
  Company Number: US-ASTRAZENECA-2017SE11472

PATIENT
  Sex: Female

DRUGS (3)
  1. SYMBICORT [Suspect]
     Active Substance: BUDESONIDE\FORMOTEROL FUMARATE DIHYDRATE
     Indication: ASTHMA
     Dosage: 160/4.5 UG UNKNOWN
     Route: 055
  2. SYMBICORT [Suspect]
     Active Substance: BUDESONIDE\FORMOTEROL FUMARATE DIHYDRATE
     Indication: MULTIPLE ALLERGIES
     Dosage: 160/4.5 UG UNKNOWN
     Route: 055
  3. ZYRTEC OVER THE COUNTER [Concomitant]
     Dosage: DAILY

REACTIONS (7)
  - Intentional product misuse [Unknown]
  - Product use issue [Unknown]
  - Hypersensitivity [Unknown]
  - Off label use [Not Recovered/Not Resolved]
  - Device failure [Unknown]
  - Asthma [Recovered/Resolved]
  - Device malfunction [Unknown]
